FAERS Safety Report 17959432 (Version 1)
Quarter: 2020Q2

REPORT INFORMATION
  Report Type: Spontaneous
  Country: JP (occurrence: JP)
  Receive Date: 20200629
  Receipt Date: 20200629
  Transmission Date: 20200714
  Serious: Yes (Hospitalization)
  Sender: FDA-Public Use
  Company Number: JP-FERRINGPH-2020FE04009

PATIENT
  Age: 11 Year
  Sex: Male

DRUGS (1)
  1. MINIRINMELT [Suspect]
     Active Substance: DESMOPRESSIN ACETATE
     Indication: ENURESIS
     Dosage: 120 UG, 2 TIMES DAILY
     Route: 048
     Dates: start: 201801

REACTIONS (2)
  - Salivary gland calculus [Not Recovered/Not Resolved]
  - Salivary gland calculus [Unknown]

NARRATIVE: CASE EVENT DATE: 201909
